FAERS Safety Report 15075189 (Version 1)
Quarter: 2018Q2

REPORT INFORMATION
  Report Type: Spontaneous
  Country: US (occurrence: US)
  Receive Date: 20180627
  Receipt Date: 20180627
  Transmission Date: 20180711
  Serious: Yes (Hospitalization)
  Sender: FDA-Public Use
  Company Number: US-SAOL THERAPEUTICS-2017SAO03454

PATIENT
  Age: 64 Year
  Sex: Male

DRUGS (2)
  1. DILAUDID [Suspect]
     Active Substance: HYDROMORPHONE HYDROCHLORIDE
     Dosage: .3399 MG, \DAY
     Route: 037
  2. BACLOFEN. [Suspect]
     Active Substance: BACLOFEN
     Indication: MUSCLE SPASTICITY
     Dosage: 424.9 ?G, \DAY
     Route: 037

REACTIONS (3)
  - Malaise [Unknown]
  - Depressed level of consciousness [Unknown]
  - Seizure [Unknown]

NARRATIVE: CASE EVENT DATE: 20171204
